FAERS Safety Report 8079807-8 (Version None)
Quarter: 2012Q1

REPORT INFORMATION
  Report Type: 
  Country: None (occurrence: None)
  Receive Date: 20120128
  Receipt Date: 20110830
  Transmission Date: 20120608
  Serious: Yes (Hospitalization, Other)
  Sender: FDA-Public Use
  Company Number: US-ABBOTT-11P-163-0850569-00

PATIENT
  Age: 72 Year
  Sex: Female

DRUGS (8)
  1. METHOTREXATE [Concomitant]
     Indication: PRODUCT USED FOR UNKNOWN INDICATION
  2. HUMIRA [Suspect]
     Indication: RHEUMATOID ARTHRITIS
     Route: 058
     Dates: start: 20020101
  3. LOSARTAN POTASSIUM [Concomitant]
     Indication: HYPERTENSION
  4. TRAMADOL HCL [Concomitant]
     Indication: ARTHRALGIA
  5. PREDNISOLONE [Concomitant]
     Indication: INFLAMMATION
  6. XANAX [Concomitant]
     Indication: ANXIETY
  7. CELEBREX [Concomitant]
     Indication: PRODUCT USED FOR UNKNOWN INDICATION
  8. LEVOTHYROXINE SODIUM [Concomitant]
     Indication: HYPOTHYROIDISM

REACTIONS (6)
  - PAIN [None]
  - ARTHROSCOPY [None]
  - APPENDICITIS PERFORATED [None]
  - ROTATOR CUFF REPAIR [None]
  - SURGERY [None]
  - BREAST CANCER [None]
